FAERS Safety Report 9122936 (Version 2)
Quarter: 2013Q1

REPORT INFORMATION
  Report Type: Spontaneous
  Country: US (occurrence: None)
  Receive Date: 20130130
  Receipt Date: 20130225
  Transmission Date: 20140127
  Serious: Yes (Death)
  Sender: FDA-Public Use
  Company Number: 1301-122

PATIENT
  Sex: 0

DRUGS (1)
  1. EYLEA [Suspect]
     Dates: start: 20120919

REACTIONS (2)
  - Septic shock [None]
  - Ovarian cancer metastatic [None]
